FAERS Safety Report 9921144 (Version 3)
Quarter: 2014Q1

REPORT INFORMATION
  Report Type: Spontaneous
  Country: JP (occurrence: JP)
  Receive Date: 20140225
  Receipt Date: 20140321
  Transmission Date: 20141002
  Serious: Yes (Hospitalization, Disabling)
  Sender: FDA-Public Use
  Company Number: JP-ASTRAZENECA-2014SE11927

PATIENT
  Age: 88 Year
  Sex: Female
  Weight: 47 kg

DRUGS (3)
  1. ARIMIDEX [Suspect]
     Indication: BREAST CANCER
     Route: 048
     Dates: start: 20131002, end: 20140125
  2. BAYASPIRIN [Concomitant]
     Route: 048
     Dates: end: 201312
  3. GLAKAY [Concomitant]
     Indication: GASTRIC ULCER
     Route: 048
     Dates: end: 201312

REACTIONS (3)
  - Interstitial lung disease [Recovering/Resolving]
  - Pulmonary embolism [Recovering/Resolving]
  - Deep vein thrombosis [Recovering/Resolving]
